FAERS Safety Report 17742549 (Version 1)
Quarter: 2020Q2

REPORT INFORMATION
  Report Type: Spontaneous
  Country: PT (occurrence: PT)
  Receive Date: 20200504
  Receipt Date: 20200504
  Transmission Date: 20200714
  Serious: Yes (Death, Other)
  Sender: FDA-Public Use
  Company Number: PT-ELI_LILLY_AND_COMPANY-PT201911009849

PATIENT
  Age: 56 Year
  Weight: 61 kg

DRUGS (2)
  1. ALIMTA [Suspect]
     Active Substance: PEMETREXED DISODIUM
     Indication: LUNG NEOPLASM MALIGNANT
     Dosage: 500MG/M2 EVERY 21 DAYS
     Route: 042
     Dates: start: 20191014, end: 20191014
  2. ALIMTA [Suspect]
     Active Substance: PEMETREXED DISODIUM
     Dosage: 500MG/M2 EVERY 21 DAYS
     Route: 042
     Dates: start: 20191014, end: 20191014

REACTIONS (2)
  - Rash erythematous [Fatal]
  - Stomatitis [Fatal]

NARRATIVE: CASE EVENT DATE: 20191021
